FAERS Safety Report 5940247-6 (Version None)
Quarter: 2008Q4

REPORT INFORMATION
  Report Type: 
  Country: None (occurrence: None)
  Receive Date: 20081031
  Receipt Date: 20081031
  Transmission Date: 20090506
  Serious: No
  Sender: FDA-Public Use
  Company Number: None

PATIENT
  Age: 78 Year
  Sex: Male
  Weight: 83.01 kg

DRUGS (1)
  1. AZACITIDINE [Suspect]
     Indication: MYELODYSPLASTIC SYNDROME
     Dosage: 150 MG OTHER IV
     Route: 042
     Dates: start: 20080612, end: 20080923

REACTIONS (1)
  - RENAL FAILURE ACUTE [None]
